FAERS Safety Report 22642729 (Version 1)
Quarter: 2023Q2

REPORT INFORMATION
  Report Type: Other
  Country: US (occurrence: None)
  Receive Date: 20230627
  Receipt Date: 20230627
  Transmission Date: 20230721
  Serious: Yes (Death)
  Sender: FDA-Public Use
  Company Number: US-ROCHE-3377062

PATIENT
  Age: 86 Year
  Sex: Male

DRUGS (1)
  1. ROZLYTREK [Suspect]
     Active Substance: ENTRECTINIB
     Indication: Lung neoplasm malignant
     Dosage: TAKE 2 CAPSULE(S) BY MOUTH DAILY SWALLOW CAPSULES WHOLE. DO NOT OPEN, CRUSH, CHEW, OR DISSOLVE THE C
     Route: 048

REACTIONS (1)
  - Death [Fatal]
